FAERS Safety Report 25854364 (Version 1)
Quarter: 2025Q3

REPORT INFORMATION
  Report Type: Report from Study
  Country: GB (occurrence: GB)
  Receive Date: 20250927
  Receipt Date: 20250927
  Transmission Date: 20251021
  Serious: Yes (Hospitalization)
  Sender: ABBVIE
  Company Number: GB-ABBVIE-6476939

PATIENT
  Age: 82 Year
  Sex: Male

DRUGS (1)
  1. RINVOQ [Suspect]
     Active Substance: UPADACITINIB
     Indication: Rheumatoid arthritis
     Dosage: 28 X RINVOQ 15MG MODIFIED-RELEASE TABLETS
     Route: 048
     Dates: start: 202207, end: 20250613

REACTIONS (1)
  - Accident [Unknown]

NARRATIVE: CASE EVENT DATE: 20250613
